FAERS Safety Report 4872173-8 (Version None)
Quarter: 2006Q1

REPORT INFORMATION
  Report Type: 
  Country: None (occurrence: None)
  Receive Date: 20060103
  Receipt Date: 20051217
  Transmission Date: 20060701
  Serious: Yes (Life-Threatening)
  Sender: FDA-Public Use
  Company Number: S05-PRT-05742-01

PATIENT
  Sex: Male

DRUGS (3)
  1. CIPRALEX (ESCITALOPRAM) [Suspect]
     Dates: end: 20051217
  2. METHADONE [Suspect]
  3. ILLICIT DRUGS [Concomitant]

REACTIONS (3)
  - ATRIAL FIBRILLATION [None]
  - DRUG ABUSER [None]
  - METABOLIC ACIDOSIS [None]
